FAERS Safety Report 4887018-X (Version None)
Quarter: 2006Q1

REPORT INFORMATION
  Report Type: 
  Country: None (occurrence: None)
  Receive Date: 20060120
  Receipt Date: 20051213
  Transmission Date: 20060701
  Serious: Yes (Hospitalization)
  Sender: FDA-Public Use
  Company Number: US-MERCK-0512USA02083

PATIENT
  Age: 54 Year
  Sex: Female
  Weight: 70 kg

DRUGS (36)
  1. VIOXX [Suspect]
     Indication: ARTHRITIS
     Route: 048
     Dates: start: 20001101, end: 20041001
  2. AMBIEN [Concomitant]
     Route: 065
  3. ZOLOFT [Concomitant]
     Route: 065
  4. REGLAN [Concomitant]
     Route: 065
  5. LORTAB [Concomitant]
     Route: 065
  6. MS CONTIN [Concomitant]
     Route: 065
  7. LEVAQUIN [Concomitant]
     Route: 065
  8. CIPRO [Concomitant]
     Route: 065
  9. IMITREX [Concomitant]
     Route: 065
  10. FLAGYL [Concomitant]
     Route: 065
  11. PLAVIX [Concomitant]
     Route: 065
  12. PREMARIN [Concomitant]
     Route: 065
  13. PROTONIX [Concomitant]
     Route: 065
  14. OXYCONTIN [Concomitant]
     Route: 065
  15. NEURONTIN [Concomitant]
     Route: 065
  16. NORCO [Concomitant]
     Route: 065
  17. PHENERGAN TABLETS/SUPPOSITORIES [Concomitant]
     Route: 065
  18. ROBAXIN [Concomitant]
     Route: 065
  19. SEPTRA [Concomitant]
     Route: 065
  20. SKELAXIN [Concomitant]
     Route: 065
  21. TRAZODONE HYDROCHLORIDE [Concomitant]
     Route: 065
  22. TYLENOL (CAPLET) [Concomitant]
     Route: 065
  23. VICODIN [Concomitant]
     Route: 065
  24. ASCORBIC ACID [Concomitant]
     Route: 065
  25. COMPAZINE [Concomitant]
     Route: 065
  26. DOXEPIN HYDROCHLORIDE [Concomitant]
     Route: 065
  27. ESTRACE [Concomitant]
     Route: 065
  28. LISINOPRIL [Concomitant]
     Route: 065
  29. BENTYL [Concomitant]
     Route: 065
  30. BACTRIM [Concomitant]
     Route: 065
  31. BACLOFEN [Concomitant]
     Route: 065
  32. AMOXICILLIN [Concomitant]
     Route: 065
  33. CALCIUM (UNSPECIFIED) [Concomitant]
     Route: 065
  34. CENTRUM SILVER [Concomitant]
     Route: 065
  35. CLONAZEPAM [Concomitant]
     Route: 065
  36. PRINZIDE [Concomitant]
     Route: 065

REACTIONS (13)
  - ABDOMINAL PAIN [None]
  - CEREBROVASCULAR ACCIDENT [None]
  - DEHYDRATION [None]
  - FATIGUE [None]
  - HEADACHE [None]
  - HYPOAESTHESIA [None]
  - INFLUENZA [None]
  - INFLUENZA LIKE ILLNESS [None]
  - INTERVERTEBRAL DISC DEGENERATION [None]
  - PNEUMONIA [None]
  - PYREXIA [None]
  - SPINAL DISORDER [None]
  - VOMITING [None]
